FAERS Safety Report 11869654 (Version 1)
Quarter: 2015Q4

REPORT INFORMATION
  Report Type: Spontaneous
  Country: US (occurrence: US)
  Receive Date: 20151228
  Receipt Date: 20151228
  Transmission Date: 20160305
  Serious: Yes (Other)
  Sender: FDA-Public Use
  Company Number: US-CIPLA LTD.-2015US09712

PATIENT

DRUGS (6)
  1. PROCYCLIDINE [Suspect]
     Active Substance: PROCYCLIDINE
     Route: 064
  2. TEMAZEPAM. [Suspect]
     Active Substance: TEMAZEPAM
     Route: 064
  3. PIPOTIAZINE [Suspect]
     Active Substance: PIPOTIAZINE
     Route: 064
  4. DIAZEPAM. [Suspect]
     Active Substance: DIAZEPAM
     Route: 064
  5. SERTRALINE [Suspect]
     Active Substance: SERTRALINE HYDROCHLORIDE
     Route: 064
  6. RISPERIDONE. [Suspect]
     Active Substance: RISPERIDONE
     Route: 064

REACTIONS (2)
  - Neurodevelopmental disorder [Unknown]
  - Foetal exposure during pregnancy [Unknown]
